FAERS Safety Report 19669704 (Version 1)
Quarter: 2021Q3

REPORT INFORMATION
  Report Type: Spontaneous
  Country: CN (occurrence: CN)
  Receive Date: 20210806
  Receipt Date: 20210806
  Transmission Date: 20211014
  Serious: Yes (Other)
  Sender: FDA-Public Use
  Company Number: CN-ROCHE-2883020

PATIENT
  Age: 66 Year
  Sex: Male
  Weight: 50 kg

DRUGS (4)
  1. BENDAMUSTINE HYDROCHLORIDE. [Concomitant]
     Active Substance: BENDAMUSTINE HYDROCHLORIDE
     Indication: WALDENSTROM^S MACROGLOBULINAEMIA
     Route: 041
     Dates: start: 20210619
  2. BENDAMUSTINE HYDROCHLORIDE. [Concomitant]
     Active Substance: BENDAMUSTINE HYDROCHLORIDE
     Indication: ACQUIRED IMMUNODEFICIENCY SYNDROME
  3. MABTHERA [Suspect]
     Active Substance: RITUXIMAB
     Indication: ACQUIRED IMMUNODEFICIENCY SYNDROME
  4. MABTHERA [Suspect]
     Active Substance: RITUXIMAB
     Indication: WALDENSTROM^S MACROGLOBULINAEMIA
     Route: 041
     Dates: start: 20210619, end: 20210619

REACTIONS (5)
  - Temperature intolerance [Recovered/Resolved]
  - Chills [Recovered/Resolved]
  - Tachypnoea [Recovered/Resolved]
  - Palpitations [Recovered/Resolved]
  - Pyrexia [Recovered/Resolved]

NARRATIVE: CASE EVENT DATE: 20210619
